FAERS Safety Report 7183413-7 (Version None)
Quarter: 2010Q4

REPORT INFORMATION
  Report Type: 
  Country: None (occurrence: None)
  Receive Date: 20101220
  Receipt Date: 20101220
  Transmission Date: 20110411
  Serious: Yes (Hospitalization)
  Sender: FDA-Public Use
  Company Number: None

PATIENT
  Age: 81 Year
  Sex: Male
  Weight: 74.7 kg

DRUGS (7)
  1. ETODOLAC [Suspect]
     Indication: PAIN
     Dosage: 500MG PRN BID PO CHRONIC
     Route: 048
  2. ALEVE [Suspect]
     Dosage: PO
     Route: 048
  3. BISOPROLOL FUMARATE AND HYDROCHLOROTHIAZIDE [Concomitant]
  4. CADUET [Concomitant]
  5. METHOCARBAMOL [Concomitant]
  6. SEPTRA [Concomitant]
  7. NEURONTIN [Concomitant]

REACTIONS (2)
  - ANAEMIA [None]
  - DUODENAL ULCER [None]
